FAERS Safety Report 13669433 (Version 2)
Quarter: 2017Q3

REPORT INFORMATION
  Report Type: Spontaneous
  Country: JP (occurrence: JP)
  Receive Date: 20170620
  Receipt Date: 20170718
  Transmission Date: 20171127
  Serious: Yes (Death, Other)
  Sender: FDA-Public Use
  Company Number: JP-MYLANLABS-2017M1034701

PATIENT

DRUGS (5)
  1. CARBOPLATIN MYLAN [Suspect]
     Active Substance: CARBOPLATIN
     Indication: ADENOCARCINOMA OF THE CERVIX
     Dosage: 420 MG, UNK
     Route: 042
     Dates: start: 20170602, end: 20170602
  2. ALOXI [Concomitant]
     Active Substance: PALONOSETRON HYDROCHLORIDE
     Indication: PRODUCT USED FOR UNKNOWN INDICATION
     Dosage: 0.75 MG, UNK
     Route: 042
     Dates: start: 20170602, end: 20170602
  3. DEXART [Concomitant]
     Active Substance: DEXAMETHASONE SODIUM PHOSPHATE
     Indication: PRODUCT USED FOR UNKNOWN INDICATION
     Dosage: 19.8 MG, UNK
     Route: 042
     Dates: start: 20170602, end: 20170602
  4. GASTER [Concomitant]
     Active Substance: FAMOTIDINE
     Indication: PRODUCT USED FOR UNKNOWN INDICATION
     Dosage: 20 MG, UNK
     Route: 042
     Dates: start: 20170602, end: 20170602
  5. PACLITAXEL. [Suspect]
     Active Substance: PACLITAXEL
     Indication: ADENOCARCINOMA OF THE CERVIX
     Dosage: 270 MG, UNK
     Route: 042
     Dates: start: 20170602, end: 20170602

REACTIONS (1)
  - Septic shock [Fatal]

NARRATIVE: CASE EVENT DATE: 20170608
